FAERS Safety Report 22801201 (Version 4)
Quarter: 2024Q1

REPORT INFORMATION
  Report Type: Spontaneous
  Country: US (occurrence: US)
  Receive Date: 20230809
  Receipt Date: 20240320
  Transmission Date: 20240410
  Serious: Yes (Other)
  Sender: FDA-Public Use
  Company Number: US-UNITED THERAPEUTICS-UNT-2023-021677

PATIENT
  Age: 74 Year
  Sex: Male
  Weight: 72.109 kg

DRUGS (5)
  1. TYVASO [Suspect]
     Active Substance: TREPROSTINIL
     Indication: Pulmonary arterial hypertension
     Dosage: 6 ?G, QID
     Dates: start: 202307, end: 2023
  2. TYVASO [Suspect]
     Active Substance: TREPROSTINIL
     Dosage: 18 ?G, QID
     Dates: start: 2023
  3. TYVASO [Suspect]
     Active Substance: TREPROSTINIL
     Dosage: UNK
     Dates: start: 20230719
  4. OFEV [Suspect]
     Active Substance: NINTEDANIB
     Indication: Idiopathic pulmonary fibrosis
     Dosage: 150 MG, BID (1 EVERY 12 HOUR)
     Route: 048
     Dates: start: 20210921, end: 20230215
  5. OFEV [Suspect]
     Active Substance: NINTEDANIB
     Dosage: 150 MG, BID (1 EVERY 12 HOUR)
     Route: 048
     Dates: start: 202301

REACTIONS (16)
  - Colitis [Unknown]
  - Decreased appetite [Unknown]
  - Diarrhoea [Not Recovered/Not Resolved]
  - Weight fluctuation [Unknown]
  - COVID-19 [Unknown]
  - Dizziness [Unknown]
  - Hypotension [Unknown]
  - Nausea [Unknown]
  - Vomiting [Unknown]
  - Abdominal pain upper [Unknown]
  - Blood potassium decreased [Recovered/Resolved]
  - Joint swelling [Unknown]
  - Oedema peripheral [Unknown]
  - Sensory disturbance [Not Recovered/Not Resolved]
  - Product dose omission issue [Recovered/Resolved]
  - Device operational issue [Unknown]

NARRATIVE: CASE EVENT DATE: 20230701
